FAERS Safety Report 18314044 (Version 3)
Quarter: 2021Q1

REPORT INFORMATION
  Report Type: Spontaneous
  Country: BR (occurrence: BR)
  Receive Date: 20200925
  Receipt Date: 20210212
  Transmission Date: 20210419
  Serious: Yes (Other)
  Sender: FDA-Public Use
  Company Number: BR-EMD SERONO-9187112

PATIENT
  Age: 66 Year
  Sex: Female

DRUGS (3)
  1. GLIFAGE [Suspect]
     Active Substance: METFORMIN HYDROCHLORIDE
     Route: 048
     Dates: start: 2020
  2. PURAN [Concomitant]
     Active Substance: LEVOTHYROXINE SODIUM
     Indication: THYROID DISORDER
  3. GLIFAGE [Suspect]
     Active Substance: METFORMIN HYDROCHLORIDE
     Indication: PRODUCT USED FOR UNKNOWN INDICATION
     Dosage: MANUFACTURE /APR/2020
     Route: 048
     Dates: start: 202004, end: 2020

REACTIONS (10)
  - Pain in extremity [Recovering/Resolving]
  - Memory impairment [Not Recovered/Not Resolved]
  - Drug intolerance [Unknown]
  - Treatment noncompliance [Unknown]
  - Nervousness [Unknown]
  - Sluggishness [Not Recovered/Not Resolved]
  - Dizziness [Not Recovered/Not Resolved]
  - Confusional state [Not Recovered/Not Resolved]
  - Cataract [Not Recovered/Not Resolved]
  - Asthenia [Recovering/Resolving]

NARRATIVE: CASE EVENT DATE: 2020
